FAERS Safety Report 21454151 (Version 2)
Quarter: 2022Q4

REPORT INFORMATION
  Report Type: Report from Study
  Country: JP (occurrence: JP)
  Receive Date: 20221013
  Receipt Date: 20221020
  Transmission Date: 20230113
  Serious: Yes (Hospitalization)
  Sender: FDA-Public Use
  Company Number: JP-JNJFOC-20221010288

PATIENT
  Age: 67 Year
  Sex: Male

DRUGS (20)
  1. AMIVANTAMAB [Suspect]
     Active Substance: AMIVANTAMAB
     Indication: Non-small cell lung cancer metastatic
     Route: 042
     Dates: start: 20210610, end: 20220902
  2. CARBOPLATIN [Concomitant]
     Active Substance: CARBOPLATIN
     Indication: Non-small cell lung cancer metastatic
     Route: 042
     Dates: start: 20210217, end: 20210428
  3. PEMETREXED [Concomitant]
     Active Substance: PEMETREXED
     Indication: Non-small cell lung cancer metastatic
     Route: 042
     Dates: start: 20210217, end: 20210428
  4. HUMALOG [Concomitant]
     Active Substance: INSULIN LISPRO
     Indication: Diabetes mellitus
     Dosage: 4/16/18
     Route: 058
     Dates: start: 2000
  5. LEVEMIR [Concomitant]
     Active Substance: INSULIN DETEMIR
     Indication: Diabetes mellitus
     Dosage: DOSE 40, UNITS NOT PROVIDED
     Route: 058
     Dates: start: 2000
  6. IPRAGLIFLOZIN L-PROLINE [Concomitant]
     Active Substance: IPRAGLIFLOZIN L-PROLINE
     Indication: Diabetes mellitus
     Route: 048
     Dates: start: 2000
  7. HYZAAR [Concomitant]
     Active Substance: HYDROCHLOROTHIAZIDE\LOSARTAN POTASSIUM
     Indication: Hypertension
     Route: 048
     Dates: start: 2011
  8. ROSUVASTATIN [Concomitant]
     Active Substance: ROSUVASTATIN
     Indication: Hyperlipidaemia
     Route: 048
     Dates: start: 2011
  9. SENNOSIDES A AND B [Concomitant]
     Active Substance: SENNOSIDES A AND B
     Indication: Constipation
     Route: 048
     Dates: start: 20210219
  10. DENOSUMAB [Concomitant]
     Active Substance: DENOSUMAB
     Indication: Lung cancer metastatic
     Route: 058
     Dates: start: 20210219
  11. MAGNESIUM OXIDE [Concomitant]
     Active Substance: MAGNESIUM OXIDE
     Indication: Constipation
     Route: 048
     Dates: start: 20210225
  12. HEPARINOID [Concomitant]
     Indication: Dry skin
     Dosage: DOSE 1, UNITS NOT PROVIDED
     Route: 061
     Dates: start: 20210719
  13. DEXAMETHASONE [Concomitant]
     Active Substance: DEXAMETHASONE
     Indication: Prophylaxis
     Route: 047
     Dates: start: 20210921
  14. GATIFLOXACIN [Concomitant]
     Active Substance: GATIFLOXACIN
     Indication: Infection prophylaxis
     Route: 047
     Dates: start: 20210921
  15. BROMFENAC SODIUM HYDRATE [Concomitant]
     Indication: Prophylaxis
     Route: 047
     Dates: start: 20210921
  16. AMLODIPINE [Concomitant]
     Active Substance: AMLODIPINE BESYLATE
     Indication: Hypertension
     Route: 048
     Dates: start: 20210924
  17. RINDERON V [Concomitant]
     Active Substance: BETAMETHASONE VALERATE
     Indication: Paronychia
     Dosage: DOSE 1, UNITS NOT PROVIDED
     Route: 061
     Dates: start: 20220318
  18. HYALURONATE SODIUM [Concomitant]
     Active Substance: HYALURONATE SODIUM
     Indication: Prophylaxis
     Route: 047
     Dates: start: 20220418
  19. FUROSEMIDE [Concomitant]
     Active Substance: FUROSEMIDE
     Indication: Oedema peripheral
     Route: 048
     Dates: start: 20220724
  20. INSULIN LISPRO BS [Concomitant]
     Indication: Diabetes mellitus
     Dosage: DOSE 1, UNITS NOT PROVIDED
     Route: 058
     Dates: start: 20220725

REACTIONS (1)
  - Respiratory failure [Not Recovered/Not Resolved]

NARRATIVE: CASE EVENT DATE: 20221005
